FAERS Safety Report 26118045 (Version 1)
Quarter: 2025Q4

REPORT INFORMATION
  Report Type: Report from Study
  Country: US (occurrence: US)
  Receive Date: 20251203
  Receipt Date: 20251203
  Transmission Date: 20260118
  Serious: Yes (Other)
  Sender: ABBVIE
  Company Number: US-ABBVIE-6572036

PATIENT
  Age: 31 Year
  Sex: Male

DRUGS (1)
  1. RINVOQ [Suspect]
     Active Substance: UPADACITINIB
     Indication: Crohn^s disease
     Route: 048
     Dates: start: 20230607

REACTIONS (4)
  - Surgical failure [Unknown]
  - Crohn^s disease [Recovering/Resolving]
  - Laparotomy [Unknown]
  - Malnutrition [Unknown]

NARRATIVE: CASE EVENT DATE: 20240606
